FAERS Safety Report 22040171 (Version 1)
Quarter: 2023Q1

REPORT INFORMATION
  Report Type: Spontaneous
  Country: US (occurrence: None)
  Receive Date: 20230224
  Receipt Date: 20230224
  Transmission Date: 20230417
  Serious: Yes (Other)
  Sender: FDA-Public Use
  Company Number: None

PATIENT
  Age: 33 Year
  Sex: Female
  Weight: 135.9 kg

DRUGS (1)
  1. REMICADE [Suspect]
     Active Substance: INFLIXIMAB

REACTIONS (4)
  - Ventricular extrasystoles [None]
  - Cardiomyopathy [None]
  - Ejection fraction decreased [None]
  - Drug ineffective [None]

NARRATIVE: CASE EVENT DATE: 20200217
